FAERS Safety Report 24739082 (Version 1)
Quarter: 2024Q4

REPORT INFORMATION
  Report Type: Spontaneous
  Country: GB (occurrence: GB)
  Receive Date: 20241216
  Receipt Date: 20241216
  Transmission Date: 20250114
  Serious: Yes (Other)
  Sender: SYMOGEN
  Company Number: GB-PARTNER THERAPEUTICS-2024PTX04071

PATIENT
  Sex: Male

DRUGS (2)
  1. SARGRAMOSTIM [Suspect]
     Active Substance: SARGRAMOSTIM
     Indication: Alveolar proteinosis
     Dosage: UNK
     Dates: start: 200612
  2. SARGRAMOSTIM [Suspect]
     Active Substance: SARGRAMOSTIM
     Dosage: MINIMAL DOSE
     Dates: end: 2020

REACTIONS (2)
  - Pulmonary fibrosis [Unknown]
  - Off label use [Recovered/Resolved]

NARRATIVE: CASE EVENT DATE: 20061201
